FAERS Safety Report 20512810 (Version 1)
Quarter: 2022Q1

REPORT INFORMATION
  Report Type: Report from Study
  Country: BR (occurrence: BR)
  Receive Date: 20220224
  Receipt Date: 20220224
  Transmission Date: 20220423
  Serious: Yes (Other)
  Sender: FDA-Public Use
  Company Number: BR-Merck Healthcare KGaA-9294075

PATIENT
  Age: 72 Year
  Sex: Female

DRUGS (7)
  1. CETUXIMAB [Suspect]
     Active Substance: CETUXIMAB
     Indication: Rectal cancer metastatic
     Dosage: UNK UNK, 2/M
     Route: 042
     Dates: start: 20210805
  2. PROPRANOLOL [Concomitant]
     Active Substance: PROPRANOLOL HYDROCHLORIDE
     Indication: Hypertension
     Dosage: UNK
  3. METFORMIN [Concomitant]
     Active Substance: METFORMIN HYDROCHLORIDE
     Indication: Diabetes mellitus
     Dosage: UNK
  4. IRINOTECAN [Concomitant]
     Active Substance: IRINOTECAN
     Indication: Rectal cancer metastatic
     Dosage: UNK
  5. ATROPINE [Concomitant]
     Active Substance: ATROPINE
     Indication: Product used for unknown indication
     Dosage: UNK
  6. LEUCOVORIN [Concomitant]
     Active Substance: LEUCOVORIN
     Indication: Rectal cancer metastatic
     Dosage: UNK
  7. FLUOROURACIL [Concomitant]
     Active Substance: FLUOROURACIL
     Indication: Rectal cancer metastatic
     Dosage: UNK

REACTIONS (9)
  - Hepatomegaly [Unknown]
  - Abdominal distension [Unknown]
  - Faeces hard [Unknown]
  - Weight decreased [Recovering/Resolving]
  - Diarrhoea [Recovering/Resolving]
  - Vomiting [Unknown]
  - Nausea [Not Recovered/Not Resolved]
  - Malaise [Unknown]
  - Off label use [Unknown]

NARRATIVE: CASE EVENT DATE: 20210801
